FAERS Safety Report 6904072-1 (Version None)
Quarter: 2010Q3

REPORT INFORMATION
  Report Type: 
  Country: None (occurrence: None)
  Receive Date: 20100804
  Receipt Date: 20090309
  Transmission Date: 20110219
  Serious: No
  Sender: FDA-Public Use
  Company Number: US-PFIZER INC-2009180482

PATIENT
  Sex: Female
  Weight: 77 kg

DRUGS (5)
  1. LYRICA [Suspect]
     Indication: FIBROMYALGIA
     Dosage: 150 MG, 3X/DAY
     Dates: start: 20080114
  2. CYMBALTA [Concomitant]
     Dosage: UNK
  3. BUSPAR [Concomitant]
     Dosage: UNK
  4. PROTONIX [Concomitant]
     Dosage: UNK
  5. IMITREX [Concomitant]
     Dosage: UNK

REACTIONS (2)
  - BLOOD GLUCOSE ABNORMAL [None]
  - WEIGHT INCREASED [None]
